FAERS Safety Report 4382252-X (Version None)
Quarter: 2004Q2

REPORT INFORMATION
  Report Type: 
  Country: None (occurrence: None)
  Receive Date: 20040616
  Receipt Date: 20040604
  Transmission Date: 20050107
  Serious: Yes (Hospitalization)
  Sender: FDA-Public Use
  Company Number: N135846

PATIENT
  Age: 80 Year
  Sex: Male

DRUGS (5)
  1. PLAVIX [Suspect]
     Indication: MESENTERIC VASCULAR INSUFFICIENCY
     Dosage: 75 MG; ORAL
     Route: 048
     Dates: start: 20011024, end: 20011102
  2. ANDROCUR (CYPROTERONE ACETATE) [Concomitant]
  3. DECAPEPTYL TRIM (GONADORELIN) [Concomitant]
  4. VANDRAL (VENLAFAXINE HYDROCHLORIDE) [Concomitant]
  5. TRANKIMAZIN (ALPRAZOLAM) [Concomitant]

REACTIONS (8)
  - ALANINE AMINOTRANSFERASE INCREASED [None]
  - ASPARTATE AMINOTRANSFERASE INCREASED [None]
  - ERYTHEMA MULTIFORME [None]
  - GAMMA-GLUTAMYLTRANSFERASE INCREASED [None]
  - HAEMATOMA [None]
  - LIVER FUNCTION TEST ABNORMAL [None]
  - NECROSIS ISCHAEMIC [None]
  - STEVENS-JOHNSON SYNDROME [None]
